FAERS Safety Report 9376986 (Version 2)
Quarter: 2013Q3

REPORT INFORMATION
  Report Type: Report from Study
  Country: AR (occurrence: AR)
  Receive Date: 20130701
  Receipt Date: 20130702
  Transmission Date: 20140515
  Serious: Yes (Death, Hospitalization)
  Sender: FDA-Public Use
  Company Number: PHHY2013AR067296

PATIENT
  Sex: Male

DRUGS (2)
  1. EXELON PATCH [Suspect]
     Dosage: 4.6 MG, (5 CM) DAILY
     Route: 062
     Dates: start: 2010
  2. EXELON PATCH [Suspect]
     Dosage: 9.5 MG, (10 CM), DAILY
     Route: 062

REACTIONS (2)
  - Cardio-respiratory arrest [Fatal]
  - Tongue neoplasm malignant stage unspecified [Fatal]
